FAERS Safety Report 17782949 (Version 1)
Quarter: 2020Q2

REPORT INFORMATION
  Report Type: Spontaneous
  Country: US (occurrence: US)
  Receive Date: 20200514
  Receipt Date: 20200514
  Transmission Date: 20200714
  Serious: Yes (Hospitalization)
  Sender: FDA-Public Use
  Company Number: None

PATIENT
  Age: 46 Year
  Sex: Female

DRUGS (8)
  1. METFORMI N [Concomitant]
  2. MYCOPHENOLATE [Suspect]
     Active Substance: MYCOPHENOLIC ACID
     Indication: PRODUCT USED FOR UNKNOWN INDICATION
     Route: 048
  3. XARELTO [Concomitant]
     Active Substance: RIVAROXABAN
  4. DIAZEPAM. [Concomitant]
     Active Substance: DIAZEPAM
  5. BACL OFEN [Concomitant]
  6. BACLOFEN. [Concomitant]
     Active Substance: BACLOFEN
  7. ZOLPIDEM [Concomitant]
     Active Substance: ZOLPIDEM TARTRATE
  8. HYDROXYZINE PAMOATE. [Concomitant]
     Active Substance: HYDROXYZINE PAMOATE

REACTIONS (2)
  - Myelitis transverse [None]
  - Loss of consciousness [None]

NARRATIVE: CASE EVENT DATE: 20200513
